FAERS Safety Report 8136234-2 (Version None)
Quarter: 2012Q1

REPORT INFORMATION
  Report Type: 
  Country: None (occurrence: None)
  Receive Date: 20120214
  Receipt Date: 20120209
  Transmission Date: 20120608
  Serious: Yes (Hospitalization)
  Sender: FDA-Public Use
  Company Number: US-AMGEN-USASP2011010610

PATIENT
  Age: 78 Year
  Sex: Female
  Weight: 54.875 kg

DRUGS (1)
  1. PROLIA [Suspect]
     Indication: OSTEOPOROSIS POSTMENOPAUSAL
     Dosage: 60 MG, Q6MO
     Route: 058
     Dates: start: 20101213

REACTIONS (3)
  - FALL [None]
  - HYPOCALCAEMIA [None]
  - HIP FRACTURE [None]
